FAERS Safety Report 9484786 (Version 2)
Quarter: 2013Q4

REPORT INFORMATION
  Report Type: Spontaneous
  Country: US (occurrence: US)
  Receive Date: 20130828
  Receipt Date: 20131115
  Transmission Date: 20140711
  Serious: Yes (Other)
  Sender: FDA-Public Use
  Company Number: US-GLAXOSMITHKLINE-A1039420A

PATIENT
  Age: 33 Year
  Sex: Female
  Weight: 104.5 kg

DRUGS (4)
  1. ADVAIR [Suspect]
     Indication: RESPIRATORY DISORDER
     Route: 065
  2. PROVENTIL HFA [Concomitant]
  3. TRAMADOL [Concomitant]
  4. METOPROLOL [Concomitant]

REACTIONS (3)
  - Disability [Unknown]
  - Surgery [Unknown]
  - Malaise [Unknown]
